FAERS Safety Report 15151326 (Version 2)
Quarter: 2018Q3

REPORT INFORMATION
  Report Type: Report from Study
  Country: US (occurrence: US)
  Receive Date: 20180716
  Receipt Date: 20180924
  Transmission Date: 20181010
  Serious: Yes (Hospitalization, Disabling, Other)
  Sender: FDA-Public Use
  Company Number: PHEH2018US027580

PATIENT
  Sex: Male

DRUGS (1)
  1. GLEEVEC [Suspect]
     Active Substance: IMATINIB MESYLATE
     Indication: CHRONIC LEUKAEMIA
     Dosage: UNK
     Route: 048

REACTIONS (15)
  - Heart valve incompetence [Recovered/Resolved]
  - Hypertension [Unknown]
  - Deep vein thrombosis [Unknown]
  - General physical health deterioration [Unknown]
  - Sleep apnoea syndrome [Unknown]
  - Neuropathy peripheral [Unknown]
  - Hypertrophic cardiomyopathy [Unknown]
  - Cardiac failure congestive [Unknown]
  - Anaemia [Unknown]
  - Arrhythmia [Unknown]
  - Muscle spasms [Unknown]
  - Renal impairment [Unknown]
  - Arthritis [Unknown]
  - Movement disorder [Unknown]
  - Varicose vein [Unknown]
